FAERS Safety Report 21123024 (Version 1)
Quarter: 2022Q3

REPORT INFORMATION
  Report Type: Spontaneous
  Country: CA (occurrence: CA)
  Receive Date: 20220724
  Receipt Date: 20220724
  Transmission Date: 20221026
  Serious: Yes (Death, Hospitalization, Other)
  Sender: FDA-Public Use
  Company Number: CA-SA-2007-01488

PATIENT
  Age: 73 Year
  Sex: Male

DRUGS (1)
  1. RABIES VACCINE [Suspect]
     Active Substance: RABIES VACCINE
     Indication: Immunisation
     Dosage: 1200 IU
     Route: 030

REACTIONS (14)
  - Encephalitis [Fatal]
  - Brain death [Fatal]
  - Rabies [Fatal]
  - Pain [Fatal]
  - Pyrexia [Fatal]
  - Dysphagia [Fatal]
  - Muscle spasms [Fatal]
  - Asthenia [Fatal]
  - Irritability [Fatal]
  - Lethargy [Fatal]
  - Salivary hypersecretion [Fatal]
  - Myoclonus [Fatal]
  - Posturing [Fatal]
  - Meningitis [Fatal]

NARRATIVE: CASE EVENT DATE: 20070101
